FAERS Safety Report 10146183 (Version 2)
Quarter: 2014Q2

REPORT INFORMATION
  Report Type: Report from Study
  Country: HU (occurrence: HU)
  Receive Date: 20140501
  Receipt Date: 20140512
  Transmission Date: 20141212
  Serious: Yes (Hospitalization, Other)
  Sender: FDA-Public Use
  Company Number: HU-NOVOPROD-407735

PATIENT
  Age: 73 Year
  Sex: Female
  Weight: 65 kg

DRUGS (5)
  1. INSULIN DETEMIR FLEXPEN [Suspect]
     Indication: TYPE 1 DIABETES MELLITUS
     Dosage: 12 U, QD
     Route: 058
     Dates: start: 20131007
  2. FIASP 3ML PDS290 [Suspect]
     Indication: TYPE 1 DIABETES MELLITUS
     Dosage: 19 U, QD
     Route: 058
     Dates: start: 20131129
  3. NOVORAPID PDS290 [Suspect]
     Indication: TYPE 1 DIABETES MELLITUS
     Dosage: 15 U, QD
     Dates: start: 20131007, end: 20131129
  4. NOVORAPID [Concomitant]
     Indication: TYPE 1 DIABETES MELLITUS
     Dosage: 15 IU, QD
     Route: 058
     Dates: start: 20020930, end: 20131007
  5. LANTUS [Concomitant]
     Indication: TYPE 1 DIABETES MELLITUS
     Dosage: 12 IU, QD
     Route: 058
     Dates: start: 20020930, end: 20131007

REACTIONS (1)
  - Radius fracture [Recovered/Resolved]
